FAERS Safety Report 13923633 (Version 1)
Quarter: 2017Q3

REPORT INFORMATION
  Report Type: Spontaneous
  Country: US (occurrence: US)
  Receive Date: 20170830
  Receipt Date: 20170830
  Transmission Date: 20171127
  Serious: Yes (Hospitalization)
  Sender: FDA-Public Use
  Company Number: None

PATIENT
  Age: 69 Year
  Sex: Male
  Weight: 78.75 kg

DRUGS (8)
  1. ELIQUIS [Concomitant]
     Active Substance: APIXABAN
  2. ASPIRIN. [Concomitant]
     Active Substance: ASPIRIN
  3. LISINOPRIL. [Concomitant]
     Active Substance: LISINOPRIL
  4. VITAMIN B COMPLEX [Concomitant]
     Active Substance: CYANOCOBALAMIN\DEXPANTHENOL\NIACINAMIDE\PYRIDOXINE HYDROCHLORIDE\RIBOFLAVIN 5^-PHOSPHATE SODIUM\THIAMINE HYDROCHLORIDE\VITAMIN B COMPLEX
  5. AMIODARONE [Suspect]
     Active Substance: AMIODARONE
     Indication: HEART RATE INCREASED
     Dosage: ?          QUANTITY:2 TABLET(S);?
     Route: 048
  6. METOPROLOL. [Concomitant]
     Active Substance: METOPROLOL
  7. VITAMIN C [Concomitant]
     Active Substance: ASCORBIC ACID
  8. FISH OIL [Concomitant]
     Active Substance: FISH OIL

REACTIONS (3)
  - Reading disorder [None]
  - Impaired driving ability [None]
  - Blindness [None]

NARRATIVE: CASE EVENT DATE: 20161116
